FAERS Safety Report 20001314 (Version 1)
Quarter: 2021Q4

REPORT INFORMATION
  Report Type: Spontaneous
  Country: US (occurrence: US)
  Receive Date: 20211027
  Receipt Date: 20211027
  Transmission Date: 20220303
  Serious: Yes (Hospitalization)
  Sender: FDA-Public Use
  Company Number: None

PATIENT
  Sex: Male
  Weight: 108.6 kg

DRUGS (5)
  1. CISPLATIN [Suspect]
     Active Substance: CISPLATIN
  2. AMLODIPINE [Concomitant]
     Active Substance: AMLODIPINE BESYLATE
  3. GABAPENTIN [Concomitant]
     Active Substance: GABAPENTIN
  4. IBUPROFEN [Concomitant]
     Active Substance: IBUPROFEN
  5. LOSARTAN [Concomitant]
     Active Substance: LOSARTAN

REACTIONS (6)
  - Neutrophil count decreased [None]
  - Dehydration [None]
  - Human rhinovirus test positive [None]
  - Pneumonia [None]
  - Febrile neutropenia [None]
  - Staphylococcal infection [None]

NARRATIVE: CASE EVENT DATE: 20211025
